FAERS Safety Report 11081845 (Version 1)
Quarter: 2015Q2

REPORT INFORMATION
  Report Type: Spontaneous
  Country: JP (occurrence: None)
  Receive Date: 20150429
  Receipt Date: 20150429
  Transmission Date: 20150821
  Serious: Yes (Other)
  Sender: FDA-Public Use
  Company Number: INT_00740_2015

PATIENT
  Age: 71 Year
  Sex: Male

DRUGS (6)
  1. APREPITANT. [Concomitant]
     Active Substance: APREPITANT
  2. DEXAMETHASONE. [Concomitant]
     Active Substance: DEXAMETHASONE
  3. CISPLATIN. [Suspect]
     Active Substance: CISPLATIN
     Indication: BILE DUCT CANCER
     Dosage: (25 MG/M2, DF)
  4. GEMCITABINE [Suspect]
     Active Substance: GEMCITABINE\GEMCITABINE HYDROCHLORIDE
     Indication: BILE DUCT CANCER
     Dosage: (1000 MG/M2, DF)
  5. AMLODIPINE [Concomitant]
     Active Substance: AMLODIPINE BESYLATE
  6. PALONOSETRON [Concomitant]
     Active Substance: PALONOSETRON

REACTIONS (3)
  - Renal failure [None]
  - Colitis ischaemic [None]
  - General physical health deterioration [None]
